FAERS Safety Report 19449070 (Version 3)
Quarter: 2024Q3

REPORT INFORMATION
  Report Type: Spontaneous
  Country: DE (occurrence: DE)
  Receive Date: 20210622
  Receipt Date: 20240830
  Transmission Date: 20241017
  Serious: Yes (Other)
  Sender: MYLAN
  Company Number: DE-PFIZER INC-2020518442

PATIENT
  Age: 59 Year
  Sex: Female

DRUGS (30)
  1. PREDNISOLONE [Suspect]
     Active Substance: PREDNISOLONE
     Indication: Central nervous system lymphoma
     Dosage: 2.5 MG INTRAVENTRICULAR ON DAY 1-4 IN CYCLE A AND B, ON DAY 3-6 IN CYCLE
  2. PREDNISOLONE [Suspect]
     Active Substance: PREDNISOLONE
     Dosage: 2.5 MILLIGRAM, CYCLE, CYCLE B, DAY 1 AND 2
  3. PREDNISOLONE [Suspect]
     Active Substance: PREDNISOLONE
     Dosage: 2.5 MILLIGRAM, CYCLE, CYCLE A, DAY 1 AND 2
  4. DEXAMETHASONE [Suspect]
     Active Substance: DEXAMETHASONE
     Indication: Central nervous system lymphoma
     Dosage: 10 MG/M2 ON DAY 1-5 IN CYCLE A AND B
     Route: 048
  5. DEXAMETHASONE [Suspect]
     Active Substance: DEXAMETHASONE
     Dosage: 20 MG/M2 ON DAY 1-5 IN CYCLE C
     Route: 048
  6. DEXAMETHASONE [Suspect]
     Active Substance: DEXAMETHASONE
     Dosage: 10 MILLIGRAM/SQ. METER, CYCLE, BAS CYCLE B, DAY 1 AND 2
     Route: 048
  7. DEXAMETHASONE [Suspect]
     Active Substance: DEXAMETHASONE
     Dosage: 10 MILLIGRAM/SQ. METER, CYCLE, BAS CYCLE A, DAY 1 AND 2
     Route: 048
  8. DEXAMETHASONE [Suspect]
     Active Substance: DEXAMETHASONE
     Dosage: 10 MILLIGRAM/SQ. METER, CYCLE, BAS CYCLE C, DAY 1 AND 2
     Route: 048
  9. METHOTREXATE [Suspect]
     Active Substance: METHOTREXATE
     Indication: Central nervous system lymphoma
     Dosage: 3 MG INTRAVENTRICULAR ON DAY 1-4 IN CYCLE A AND B,
  10. METHOTREXATE [Suspect]
     Active Substance: METHOTREXATE
     Dosage: 3.5 G/M2 ON DAY 1 IN CYCLE B1, A2 AND B2
     Route: 042
  11. METHOTREXATE [Suspect]
     Active Substance: METHOTREXATE
     Dosage: 5G/M2 ON DAY 1 IN CYCLE A1
     Route: 042
  12. METHOTREXATE [Suspect]
     Active Substance: METHOTREXATE
     Dosage: CYCLE B, DAY 1, 0.5 G/M2 BSA OVER 30 MIN AND 4.5 G/M2 BSA OVER 23.5 HOURS PER INFUSION
     Route: 042
  13. METHOTREXATE [Suspect]
     Active Substance: METHOTREXATE
     Dosage: 3 MILLIGRAM, CYCLE,CYCLE B, DAY 1 AND 2
     Route: 065
  14. METHOTREXATE [Suspect]
     Active Substance: METHOTREXATE
     Dosage: CYCLE A, DAY 1
     Route: 042
  15. METHOTREXATE [Suspect]
     Active Substance: METHOTREXATE
     Dosage: 3 MILLIGRAM, CYCLE,CYCLE A, DAY 1 AND 2
     Route: 065
  16. METHOTREXATE [Suspect]
     Active Substance: METHOTREXATE
     Dosage: CYCLE B, DAY 1
     Route: 042
  17. CYTARABINE [Suspect]
     Active Substance: CYTARABINE
     Indication: Central nervous system lymphoma
     Dosage: 30 MG INTRAVENTRICULAR ON DAY 7 IN CYCLE C
     Route: 042
  18. CYTARABINE [Suspect]
     Active Substance: CYTARABINE
     Dosage: 30 MG, INTRAVENTRICULAR ON DAY 5 IN CYCLE A
  19. CYTARABINE [Suspect]
     Active Substance: CYTARABINE
     Dosage: 30 MG INTRAVENTRICULAR ON DAY 5 IN CYCLE B
  20. CYTARABINE [Suspect]
     Active Substance: CYTARABINE
     Dosage: 3 G/M2 OVER 3 HR VIA INFUSION ON DAY 1 AND 2 IN CYCLE C
  21. IFOSFAMIDE [Suspect]
     Active Substance: IFOSFAMIDE
     Indication: Central nervous system lymphoma
     Dosage: 800 MILLIGRAM/SQ. METER, CYCLE, CYCLE A, DAY 2
     Route: 042
  22. CYCLOPHOSPHAMIDE [Suspect]
     Active Substance: CYCLOPHOSPHAMIDE
     Indication: Central nervous system lymphoma
     Dosage: 200 MILLIGRAM/SQ. METER, CYCLE , CYCLE B, DAY 2
     Route: 042
  23. CYTARABINE [Suspect]
     Active Substance: CYTARABINE
     Indication: Central nervous system lymphoma
     Dosage: 30 MILLIGRAM, CYCLE, CYCLE C, DAY 1 AND 2, OVER 3 HOURS PER INFUSION
     Route: 042
  24. VINCRISTINE [Suspect]
     Active Substance: VINCRISTINE
     Indication: Central nervous system lymphoma
     Dosage: 2 MILLIGRAM, CYCLE, CYCLE A, DAY 1
     Route: 042
  25. VINCRISTINE [Suspect]
     Active Substance: VINCRISTINE
     Dosage: 2 MILLIGRAM, CYCLE, CYCLE B, DAY 1
     Route: 042
  26. IFOSFAMIDE [Suspect]
     Active Substance: IFOSFAMIDE
     Indication: Central nervous system lymphoma
     Dosage: 800 MG/M2, OVER 1 HR VIA INFUSION, ON DAY 2-5 IN CYCLE A1
     Route: 042
  27. VINDESINE [Suspect]
     Active Substance: VINDESINE
     Indication: Central nervous system lymphoma
     Dosage: 5 MG ON DAY 1 IN CYCLE C
     Route: 042
  28. TROPISETRON [Concomitant]
     Active Substance: TROPISETRON
     Indication: Prophylaxis of nausea and vomiting
     Dosage: UNK
     Route: 065
  29. ONDANSETRON [Concomitant]
     Active Substance: ONDANSETRON
     Indication: Prophylaxis of nausea and vomiting
     Dosage: UNK
     Route: 065
  30. MESNA [Concomitant]
     Active Substance: MESNA
     Indication: Prophylaxis
     Dosage: UNK
     Route: 065

REACTIONS (4)
  - Duodenal ulcer perforation [Unknown]
  - Leukopenia [Unknown]
  - Thrombocytopenia [Unknown]
  - Alopecia areata [Unknown]
